FAERS Safety Report 4450799-3 (Version None)
Quarter: 2004Q3

REPORT INFORMATION
  Report Type: 
  Country: None (occurrence: None)
  Receive Date: 20040913
  Receipt Date: 20040726
  Transmission Date: 20050211
  Serious: No
  Sender: FDA-Public Use
  Company Number: 2004-BP-06107BP(0)

PATIENT
  Age: 81 Year
  Sex: Female

DRUGS (4)
  1. SPIRIVA [Suspect]
     Indication: CHRONIC OBSTRUCTIVE AIRWAYS DISEASE
     Dosage: 18 MCG  (`8 MCG), IH
     Route: 055
  2. ADVAIR (SERETIDEMITE) [Concomitant]
  3. RHINOCORT [Concomitant]
  4. CLARITIN [Concomitant]

REACTIONS (2)
  - EPISTAXIS [None]
  - HAEMOPTYSIS [None]
